FAERS Safety Report 23693986 (Version 4)
Quarter: 2024Q2

REPORT INFORMATION
  Report Type: Report from Study
  Country: US (occurrence: US)
  Receive Date: 20240401
  Receipt Date: 20240404
  Transmission Date: 20240716
  Serious: Yes (Death)
  Sender: FDA-Public Use
  Company Number: US-ABBVIE-5701340

PATIENT
  Sex: Male

DRUGS (2)
  1. VENCLEXTA [Suspect]
     Active Substance: VENETOCLAX
     Indication: Acute lymphocytic leukaemia
     Dosage: STRENGTH 100 MG/ONE PILL FOR 28 DAYS
     Route: 048
  2. DACOGEN [Concomitant]
     Active Substance: DECITABINE
     Indication: Product used for unknown indication

REACTIONS (4)
  - Cardiomyopathy [Fatal]
  - Drug ineffective [Unknown]
  - Acute lymphocytic leukaemia [Fatal]
  - Acute myeloid leukaemia [Fatal]
